FAERS Safety Report 5164803-0 (Version None)
Quarter: 2006Q4

REPORT INFORMATION
  Report Type: 
  Country: None (occurrence: None)
  Receive Date: 20061205
  Receipt Date: 20060322
  Transmission Date: 20070319
  Serious: Yes (Hospitalization)
  Sender: FDA-Public Use
  Company Number: FR-AVENTIS-200611088FR

PATIENT
  Age: 78 Year
  Sex: Female
  Weight: 55 kg

DRUGS (8)
  1. ARAVA [Suspect]
     Indication: RHEUMATOID ARTHRITIS
     Route: 048
  2. ARAVA [Suspect]
     Route: 048
  3. CORTANCYL [Concomitant]
     Indication: RHEUMATOID ARTHRITIS
     Route: 048
  4. PRACTAZIN [Concomitant]
     Indication: HYPERTENSION
     Route: 048
  5. DEROXAT [Concomitant]
     Route: 048
  6. TAHOR [Concomitant]
     Indication: HYPERCHOLESTEROLAEMIA
     Route: 048
  7. OROCAL                             /00108001/ [Concomitant]
     Route: 048
  8. ERCEFURYL [Concomitant]

REACTIONS (4)
  - DYSPNOEA [None]
  - EMPHYSEMA [None]
  - FATIGUE [None]
  - RESPIRATORY FAILURE [None]
